FAERS Safety Report 8856574 (Version 1)
Quarter: 2012Q4

REPORT INFORMATION
  Report Type: 
  Country: US (occurrence: US)
  Receive Date: 20121023
  Receipt Date: 20121023
  Transmission Date: 20130627
  Serious: No
  Sender: FDA-Public Use
  Company Number: US-AMGEN-USASP2012057231

PATIENT
  Age: 53 Year
  Sex: Female
  Weight: 80.73 kg

DRUGS (6)
  1. ENBREL [Suspect]
     Indication: PRODUCT USED FOR UNKNOWN INDICATION
     Dosage: 50 mg, qwk
     Route: 058
  2. ADVIL                              /00044201/ [Concomitant]
     Dosage: UNK
  3. LISINOPRIL [Concomitant]
     Dosage: 10 mg, UNK
  4. SIMVASTATIN [Concomitant]
     Dosage: 40 mg, UNK
  5. VITAMIN D /00107901/ [Concomitant]
     Dosage: 2000 IU, UNK
  6. MULTIVITAMINS, PLAIN [Concomitant]
     Dosage: UNK

REACTIONS (3)
  - Injection site erythema [Unknown]
  - Injection site irritation [Unknown]
  - Injection site urticaria [Unknown]
